FAERS Safety Report 6766033-5 (Version None)
Quarter: 2010Q2

REPORT INFORMATION
  Report Type: 
  Country: None (occurrence: None)
  Receive Date: 20100611
  Receipt Date: 20100603
  Transmission Date: 20101027
  Serious: Yes (Other)
  Sender: FDA-Public Use
  Company Number: A0864186A

PATIENT
  Sex: Female
  Weight: 95.5 kg

DRUGS (2)
  1. AMOXICILLIN [Suspect]
     Indication: INFECTION
     Route: 065
  2. DEPO-PROVERA [Concomitant]
     Indication: CONTRACEPTION
     Dates: start: 20071201, end: 20080301

REACTIONS (4)
  - DRUG INEFFECTIVE [None]
  - DYSPEPSIA [None]
  - GASTRIC ULCER [None]
  - IRRITABLE BOWEL SYNDROME [None]
